FAERS Safety Report 23041186 (Version 3)
Quarter: 2023Q4

REPORT INFORMATION
  Report Type: Spontaneous
  Country: JP (occurrence: JP)
  Receive Date: 20231007
  Receipt Date: 20231211
  Transmission Date: 20240110
  Serious: Yes (Other)
  Sender: FDA-Public Use
  Company Number: JP-JNJFOC-20230951170

PATIENT
  Age: 6 Decade
  Sex: Female

DRUGS (45)
  1. RISPERDAL [Suspect]
     Active Substance: RISPERIDONE
     Indication: Schizophrenia
     Dosage: DOSE UNKNOWN,GRADUALLY INCREASED
     Route: 048
  2. RISPERDAL [Suspect]
     Active Substance: RISPERIDONE
     Route: 048
  3. RISPERDAL [Suspect]
     Active Substance: RISPERIDONE
     Dosage: DOSE UNKNOWN,GRADUALLY DECREASED
     Route: 048
  4. RISPERDAL [Suspect]
     Active Substance: RISPERIDONE
     Route: 048
  5. RISPERDAL [Suspect]
     Active Substance: RISPERIDONE
     Route: 048
  6. RISPERDAL [Suspect]
     Active Substance: RISPERIDONE
     Indication: Schizophrenia
     Dosage: DOSE UNKNOWN,GRADUALLY INCREASED
     Route: 048
  7. RISPERDAL [Suspect]
     Active Substance: RISPERIDONE
     Route: 048
  8. RISPERDAL [Suspect]
     Active Substance: RISPERIDONE
     Dosage: DOSE UNKNOWN,GRADUALLY DECREASED
     Route: 048
  9. RISPERDAL [Suspect]
     Active Substance: RISPERIDONE
     Route: 048
  10. RISPERDAL [Suspect]
     Active Substance: RISPERIDONE
     Route: 048
  11. BREXPIPRAZOLE [Interacting]
     Active Substance: BREXPIPRAZOLE
     Indication: Product used for unknown indication
     Dosage: DOSE UNKNOWN
     Route: 048
  12. BREXPIPRAZOLE [Interacting]
     Active Substance: BREXPIPRAZOLE
     Route: 048
  13. LEVOMEPROMAZINE [Interacting]
     Active Substance: LEVOMEPROMAZINE
     Indication: Product used for unknown indication
     Route: 048
  14. LEVOMEPROMAZINE [Interacting]
     Active Substance: LEVOMEPROMAZINE
     Route: 048
  15. LEVOMEPROMAZINE [Interacting]
     Active Substance: LEVOMEPROMAZINE
     Dosage: DOSE UNKNOWN, GRADUALLY DECREASED
     Route: 048
  16. LEVOMEPROMAZINE [Interacting]
     Active Substance: LEVOMEPROMAZINE
     Route: 048
  17. TRAMADOL [Suspect]
     Active Substance: TRAMADOL\TRAMADOL HYDROCHLORIDE
     Indication: Back pain
     Dosage: DOSE UNKNOWN
     Route: 048
  18. TRAMADOL [Suspect]
     Active Substance: TRAMADOL\TRAMADOL HYDROCHLORIDE
     Route: 048
  19. PALIPERIDONE PALMITATE [Concomitant]
     Active Substance: PALIPERIDONE PALMITATE
     Route: 030
  20. ZOTEPINE [Concomitant]
     Active Substance: ZOTEPINE
     Route: 048
  21. ZOTEPINE [Concomitant]
     Active Substance: ZOTEPINE
     Dosage: DOSE UNKNOWN
     Route: 048
  22. HALOPERIDOL [Concomitant]
     Active Substance: HALOPERIDOL
     Dosage: DOSE UNKNOWN
     Route: 065
  23. HALOPERIDOL [Concomitant]
     Active Substance: HALOPERIDOL
     Route: 065
  24. HALOPERIDOL [Concomitant]
     Active Substance: HALOPERIDOL
     Dosage: DOSE UNKNOWN
     Route: 065
  25. LEVOMEPROMAZINE [Concomitant]
     Active Substance: LEVOMEPROMAZINE
     Dosage: DOSE UNKNOWN
     Route: 048
  26. LEVOMEPROMAZINE [Concomitant]
     Active Substance: LEVOMEPROMAZINE
     Dosage: DOSE UNKNOWN
     Route: 048
  27. LEVOMEPROMAZINE [Concomitant]
     Active Substance: LEVOMEPROMAZINE
     Dosage: DOSE UNKNOWN
     Route: 048
  28. LEVOMEPROMAZINE [Concomitant]
     Active Substance: LEVOMEPROMAZINE
     Dosage: DOSE UNKNOWN
     Route: 048
  29. LEVOMEPROMAZINE [Concomitant]
     Active Substance: LEVOMEPROMAZINE
     Dosage: DOSE UNKNOWN
     Route: 048
  30. ASENAPINE MALEATE [Concomitant]
     Active Substance: ASENAPINE MALEATE
     Dosage: DOSE UNKNOWN
     Route: 048
  31. ASENAPINE MALEATE [Concomitant]
     Active Substance: ASENAPINE MALEATE
     Dosage: DOSE UNKNOWN
     Route: 048
  32. ASENAPINE MALEATE [Concomitant]
     Active Substance: ASENAPINE MALEATE
     Dosage: DOSE UNKNOWN
     Route: 048
  33. BLONANSERIN [Concomitant]
     Active Substance: BLONANSERIN
     Route: 065
  34. FLUPHENAZINE MALEATE [Concomitant]
     Dosage: DOSE UNKNOWN, GRADUALLY INCREASED
     Route: 065
  35. FLUPHENAZINE MALEATE [Concomitant]
     Route: 065
  36. FLUPHENAZINE MALEATE [Concomitant]
     Dosage: DOSE UNKNOWN, GRADUALLY DECREASED
     Route: 065
  37. BIPERIDEN HYDROCHLORIDE [Concomitant]
     Active Substance: BIPERIDEN HYDROCHLORIDE
     Route: 065
  38. PROPRANOLOL HYDROCHLORIDE [Concomitant]
     Active Substance: PROPRANOLOL HYDROCHLORIDE
     Route: 048
  39. PROPRANOLOL HYDROCHLORIDE [Concomitant]
     Active Substance: PROPRANOLOL HYDROCHLORIDE
     Route: 048
  40. QUETIAPINE [Concomitant]
     Active Substance: QUETIAPINE
     Route: 048
  41. QUETIAPINE [Concomitant]
     Active Substance: QUETIAPINE
     Dosage: DOSE UNKNOWN
     Route: 048
  42. LURASIDONE HYDROCHLORIDE [Concomitant]
     Active Substance: LURASIDONE HYDROCHLORIDE
     Route: 048
  43. LURASIDONE HYDROCHLORIDE [Concomitant]
     Active Substance: LURASIDONE HYDROCHLORIDE
     Dosage: DOSE UNKNOWN
     Route: 048
  44. OLANZAPINE [Concomitant]
     Active Substance: OLANZAPINE
     Route: 065
  45. OLANZAPINE [Concomitant]
     Active Substance: OLANZAPINE
     Dosage: DOSE UNKNOWN
     Route: 065

REACTIONS (3)
  - Electrocardiogram QT prolonged [Recovered/Resolved]
  - Drug interaction [Unknown]
  - Therapeutic product effect incomplete [Unknown]
